FAERS Safety Report 4736896-3 (Version None)
Quarter: 2005Q3

REPORT INFORMATION
  Report Type: 
  Country: None (occurrence: None)
  Receive Date: 20050808
  Receipt Date: 20050801
  Transmission Date: 20060218
  Serious: Yes (Death, Hospitalization)
  Sender: FDA-Public Use
  Company Number: NO-GLAXOSMITHKLINE-B0389643A

PATIENT
  Age: 75 Year
  Sex: Female

DRUGS (3)
  1. LEUKERAN [Suspect]
     Dosage: 22MG PER DAY
     Route: 048
     Dates: start: 20050413, end: 20050616
  2. ALLOPURINOL [Concomitant]
     Dosage: 200MG THREE TIMES PER DAY
     Dates: start: 20050405, end: 20050517
  3. NATRON [Concomitant]
     Dosage: .5MG THREE TIMES PER DAY
     Dates: start: 20050405, end: 20050517

REACTIONS (8)
  - BONE MARROW DEPRESSION [None]
  - C-REACTIVE PROTEIN INCREASED [None]
  - INFECTION [None]
  - MOUTH HAEMORRHAGE [None]
  - PNEUMONIA [None]
  - PYREXIA [None]
  - SEPSIS [None]
  - SKIN LACERATION [None]
